FAERS Safety Report 9148028 (Version 1)
Quarter: 2013Q1

REPORT INFORMATION
  Report Type: Spontaneous
  Country: JP (occurrence: JP)
  Receive Date: 20130308
  Receipt Date: 20130308
  Transmission Date: 20140127
  Serious: Yes (Hospitalization)
  Sender: FDA-Public Use
  Company Number: JP-OTSUKA-JP-2013-10552

PATIENT
  Age: 58 Year
  Sex: Female
  Weight: 45 kg

DRUGS (11)
  1. SAMSCA [Suspect]
     Indication: CARDIAC FAILURE CONGESTIVE
     Dosage: 7.5 MG MILLIGRAM(S), QAM
     Route: 048
  2. IMIDAPRIL HYDROCHLORIDE [Concomitant]
     Dosage: 5 MG MILLIGRAM(S), QAM
     Route: 048
  3. CARVEDILOL [Concomitant]
     Dosage: 2.5 MG MILLIGRAM(S), QAM
     Route: 048
  4. FUROSEMIDE [Concomitant]
     Dosage: 40 MG MILLIGRAM(S), BID
     Route: 048
  5. TRICHLORMETHIAZIDE [Concomitant]
     Dosage: 2 MG MILLIGRAM(S), QAM
     Route: 048
  6. WARFARIN K [Concomitant]
     Dosage: 1.5 MG MILLIGRAM(S), QAM
     Route: 048
  7. ASPIRIN [Concomitant]
     Dosage: 100 MG MILLIGRAM(S), QAM
     Route: 048
  8. FEXOFENADINE HYDROCHLORIDE [Concomitant]
     Dosage: 60 MG MILLIGRAM(S), QAM
     Route: 048
  9. SENNOSIDE [Concomitant]
     Dosage: 24 MG MILLIGRAM(S), HS
     Route: 048
  10. BROTIZOLAM [Concomitant]
     Dosage: 0.25 MG MILLIGRAM(S), HS
     Route: 048
  11. CALCIUM POLYSTYRENE SULFONATE [Concomitant]
     Dosage: 5 G GRAM(S), TID
     Route: 048

REACTIONS (1)
  - Renal failure [Unknown]
